FAERS Safety Report 13678659 (Version 1)
Quarter: 2017Q2

REPORT INFORMATION
  Report Type: Spontaneous
  Country: US (occurrence: US)
  Receive Date: 20170622
  Receipt Date: 20170622
  Transmission Date: 20170830
  Serious: No
  Sender: FDA-Public Use
  Company Number: US-SA-2016SA182924

PATIENT
  Age: 11 Year
  Sex: Female

DRUGS (1)
  1. CEREZYME [Suspect]
     Active Substance: IMIGLUCERASE
     Dosage: DOSE:3200 UNIT(S)
     Route: 042
     Dates: start: 20110412, end: 20160915

REACTIONS (1)
  - Catheter site pain [Unknown]

NARRATIVE: CASE EVENT DATE: 20160915
